FAERS Safety Report 19552831 (Version 2)
Quarter: 2021Q3

REPORT INFORMATION
  Report Type: Spontaneous
  Country: US (occurrence: US)
  Receive Date: 20210714
  Receipt Date: 20210805
  Transmission Date: 20211014
  Serious: No
  Sender: FDA-Public Use
  Company Number: US-SA-2021SA228894

PATIENT
  Sex: Female

DRUGS (1)
  1. DUPIXENT [Suspect]
     Active Substance: DUPILUMAB
     Indication: ASTHMA
     Dosage: 200 MG, QOW
     Route: 058

REACTIONS (8)
  - Therapeutic response shortened [Unknown]
  - Fibromyalgia [Unknown]
  - Hyperhidrosis [Unknown]
  - Pain [Unknown]
  - Restless legs syndrome [Unknown]
  - Eye irritation [Unknown]
  - Dry eye [Unknown]
  - Feeling hot [Unknown]
